FAERS Safety Report 19648615 (Version 1)
Quarter: 2021Q3

REPORT INFORMATION
  Report Type: Spontaneous
  Country: US (occurrence: US)
  Receive Date: 20210802
  Receipt Date: 20210802
  Transmission Date: 20211014
  Serious: Yes (Other)
  Sender: FDA-Public Use
  Company Number: US-ENDO PHARMACEUTICALS INC-2021-007969

PATIENT
  Age: 31 Year
  Sex: Female

DRUGS (2)
  1. RANITIDINE. [Suspect]
     Active Substance: RANITIDINE
     Indication: DYSPEPSIA
     Dosage: 300 MG, DAILY
     Route: 065
     Dates: start: 200605, end: 201204
  2. RANITIDINE HYDROCHLORIDE. [Suspect]
     Active Substance: RANITIDINE HYDROCHLORIDE
     Indication: DYSPEPSIA
     Dosage: 300 MG, DAILY
     Route: 065
     Dates: start: 200605, end: 201204

REACTIONS (4)
  - Colorectal cancer stage IV [Recovering/Resolving]
  - Gastrointestinal carcinoma [Recovering/Resolving]
  - Gastric cancer [Recovering/Resolving]
  - Small intestine carcinoma stage IV [Recovering/Resolving]

NARRATIVE: CASE EVENT DATE: 20120401
